FAERS Safety Report 6029076-5 (Version None)
Quarter: 2009Q1

REPORT INFORMATION
  Report Type: 
  Country: None (occurrence: None)
  Receive Date: 20090106
  Receipt Date: 20081212
  Transmission Date: 20090719
  Serious: Yes (Hospitalization)
  Sender: FDA-Public Use
  Company Number: PE-PFIZER INC-2009151368

PATIENT

DRUGS (1)
  1. DOSTINEX [Suspect]

REACTIONS (3)
  - ACCIDENTAL EXPOSURE [None]
  - NAUSEA [None]
  - VOMITING [None]
